FAERS Safety Report 8108708-1 (Version None)
Quarter: 2012Q1

REPORT INFORMATION
  Report Type: 
  Country: None (occurrence: None)
  Receive Date: 20120202
  Receipt Date: 20120103
  Transmission Date: 20120608
  Serious: No
  Sender: FDA-Public Use
  Company Number: US-AMGEN-USASP2011061004

PATIENT
  Age: 85 Year
  Sex: Female

DRUGS (2)
  1. ENBREL [Suspect]
     Indication: RHEUMATOID ARTHRITIS
     Dosage: 50 MG, QWK
     Dates: start: 20100121
  2. ENBREL [Suspect]
     Indication: OSTEOPOROSIS

REACTIONS (4)
  - PAIN IN EXTREMITY [None]
  - FALL [None]
  - INJECTION SITE PAIN [None]
  - BACK INJURY [None]
